FAERS Safety Report 13571485 (Version 2)
Quarter: 2017Q2

REPORT INFORMATION
  Report Type: Spontaneous
  Country: US (occurrence: US)
  Receive Date: 20170523
  Receipt Date: 20170630
  Transmission Date: 20170830
  Serious: No
  Sender: FDA-Public Use
  Company Number: US-PFIZER INC-2017220486

PATIENT
  Sex: Female

DRUGS (1)
  1. ESTRING [Suspect]
     Active Substance: ESTRADIOL
     Indication: ATROPHIC VULVOVAGINITIS
     Dosage: 1 DF (VAGINAL RING) X 3 MONTHS
     Route: 067
     Dates: start: 201705, end: 201706

REACTIONS (2)
  - Nausea [Unknown]
  - Malaise [Unknown]

NARRATIVE: CASE EVENT DATE: 201705
